FAERS Safety Report 9092850 (Version 1)
Quarter: 2013Q1

REPORT INFORMATION
  Report Type: Report from Study
  Country: US (occurrence: US)
  Receive Date: 20130131
  Receipt Date: 20130131
  Transmission Date: 20140127
  Serious: No
  Sender: FDA-Public Use
  Company Number: US-ABBOTT-12P-163-1003077-00

PATIENT
  Age: 35 Year
  Sex: Female

DRUGS (12)
  1. HUMIRA [Suspect]
     Indication: PSORIASIS
     Dates: start: 20120503
  2. MOBIC [Concomitant]
     Indication: INFLAMMATION
  3. SKELAXIN [Concomitant]
     Indication: MUSCLE SPASMS
  4. TOPIRAMATE [Concomitant]
     Indication: HEADACHE
  5. GABAPENTIN [Concomitant]
     Indication: CONVULSION
     Dosage: AT BEDTIME
  6. GABAPENTIN [Concomitant]
     Indication: NEURALGIA
  7. CLOBETASOL PROPIONATE [Concomitant]
     Indication: PRODUCT USED FOR UNKNOWN INDICATION
  8. METOPROLOL [Concomitant]
     Indication: HYPERTENSION
  9. FLUOXETINE [Concomitant]
     Indication: DEPRESSION
  10. CYMBALTA [Concomitant]
     Indication: DEPRESSION
  11. CYMBALTA [Concomitant]
     Indication: NEURALGIA
  12. NORCO [Concomitant]
     Indication: PAIN
     Dosage: 10/325 1-2 TABS EVERY FOUR HOURS

REACTIONS (4)
  - Pyrexia [Not Recovered/Not Resolved]
  - Nasopharyngitis [Not Recovered/Not Resolved]
  - Diarrhoea [Not Recovered/Not Resolved]
  - Abdominal discomfort [Not Recovered/Not Resolved]
